FAERS Safety Report 7924036 (Version 3)
Quarter: 2013Q4

REPORT INFORMATION
  Report Type: Spontaneous
  Country: US (occurrence: US)
  Receive Date: 20110502
  Receipt Date: 20131220
  Transmission Date: 20140711
  Serious: Yes (Hospitalization)
  Sender: FDA-Public Use
  Company Number: US-BAYER-2011-034112

PATIENT
  Age: 25 Year
  Sex: Female
  Weight: 104.31 kg

DRUGS (7)
  1. YASMIN [Suspect]
     Dosage: UNK
     Dates: start: 200809, end: 201001
  2. YAZ [Suspect]
     Dosage: UNK
     Route: 048
     Dates: start: 200809, end: 201001
  3. IBUPROFEN [Concomitant]
     Dosage: UNK UNK, PRN
     Dates: start: 2000, end: 2011
  4. HYDROCHLOROTHIAZIDE [Concomitant]
     Dosage: 25 MG, QD
  5. TYLENOL [Concomitant]
     Dosage: UNK UNK, PRN
     Dates: start: 20090119
  6. LORTAB [Concomitant]
     Indication: PAIN
     Dosage: 5 MG, UNK
     Route: 048
     Dates: start: 20090119
  7. DOXYCYCLINE [Concomitant]
     Dosage: 100 MG, TWICE A DAY FOR 10 DAYS
     Route: 048

REACTIONS (8)
  - Cholecystitis acute [None]
  - Gallbladder disorder [None]
  - Abdominal pain [None]
  - Anxiety [None]
  - Abdominal pain upper [None]
  - Vomiting [None]
  - Pyrexia [None]
  - Syncope [None]
